FAERS Safety Report 5187786-6 (Version None)
Quarter: 2006Q4

REPORT INFORMATION
  Report Type: 
  Country: None (occurrence: None)
  Receive Date: 20061221
  Receipt Date: 20061205
  Transmission Date: 20070319
  Serious: Yes (Other)
  Sender: FDA-Public Use
  Company Number: PHBS2006JP18912

PATIENT
  Age: 69 Year
  Sex: Male

DRUGS (3)
  1. SANDOSTATIN LAR [Suspect]
     Indication: ACROMEGALY
     Dosage: 20 MG, ONCE/SINGLE
     Route: 030
     Dates: start: 20061010, end: 20061010
  2. SANDOSTATIN LAR [Suspect]
     Dosage: 20 MG, ONCE/SINGLE
     Route: 030
     Dates: start: 20061107, end: 20061107
  3. SANDOSTATIN LAR [Suspect]
     Dosage: 20 MG, ONCE/SINGLE
     Route: 030
     Dates: start: 20060912, end: 20060912

REACTIONS (3)
  - ACCIDENT AT WORK [None]
  - DIARRHOEA [None]
  - SKIN EXFOLIATION [None]
